FAERS Safety Report 5156856-0 (Version None)
Quarter: 2006Q4

REPORT INFORMATION
  Report Type: 
  Country: None (occurrence: None)
  Receive Date: 20061115
  Receipt Date: 20061102
  Transmission Date: 20070319
  Serious: Yes (Other)
  Sender: FDA-Public Use
  Company Number: 2006134312

PATIENT
  Age: 4 Year
  Sex: Male
  Weight: 20 kg

DRUGS (2)
  1. AZITHROMYCIN [Suspect]
     Indication: TONSILLITIS
     Dosage: 20 MG (20 MG, SINGLE DOSE), ORAL
     Route: 048
     Dates: start: 20061031, end: 20061031
  2. IBUPROFEN [Concomitant]

REACTIONS (3)
  - ARTHRITIS [None]
  - OEDEMA PERIPHERAL [None]
  - URTICARIA [None]
